FAERS Safety Report 7781402 (Version 2)
Quarter: 2013Q1

REPORT INFORMATION
  Report Type: Report from Study
  Country: US (occurrence: US)
  Receive Date: 20110129
  Receipt Date: 20130130
  Transmission Date: 20140127
  Serious: No
  Sender: FDA-Public Use
  Company Number: US-ABBOTT-10P-163-0632493-00

PATIENT
  Age: 48 Year
  Sex: Female

DRUGS (6)
  1. HUMIRA [Suspect]
     Indication: CROHN^S DISEASE
     Dates: start: 201003
  2. PRAVASTATIN [Concomitant]
     Route: 048
  3. LEVEMIR [Concomitant]
     Dosage: UP TO 100 UNITS DAILY
  4. LISINOPRIL [Concomitant]
     Route: 048
  5. LEVOXYL [Concomitant]
     Route: 048
  6. 6-MP [Concomitant]
     Dosage: 2 DAILY

REACTIONS (4)
  - Incorrect dose administered [Recovered/Resolved]
  - Wrong technique in drug usage process [Unknown]
  - Injection site pain [Not Recovered/Not Resolved]
  - Injection site pain [Not Recovered/Not Resolved]
